FAERS Safety Report 8623941-8 (Version None)
Quarter: 2012Q3

REPORT INFORMATION
  Report Type: 
  Country: None (occurrence: None)
  Receive Date: 20120827
  Receipt Date: 20120822
  Transmission Date: 20120928
  Serious: Yes (Hospitalization)
  Sender: FDA-Public Use
  Company Number: PHHY2012IT069524

PATIENT
  Sex: Female

DRUGS (4)
  1. LANOXIN [Suspect]
     Dosage: 6 VIALS
     Route: 042
     Dates: start: 20120712
  2. ZOLOFT [Suspect]
     Dosage: 120 DF, UNK
     Route: 048
     Dates: start: 20120712, end: 20120712
  3. VOLTAREN [Suspect]
     Dosage: 60 DF, UNK
     Route: 048
     Dates: start: 20120712, end: 20120712
  4. ZOLPIDEM [Suspect]
     Dosage: 60 DF, UNK
     Route: 048
     Dates: start: 20120712, end: 20120712

REACTIONS (5)
  - ABNORMAL BEHAVIOUR [None]
  - INTENTIONAL OVERDOSE [None]
  - VOMITING [None]
  - SOMNOLENCE [None]
  - UNRESPONSIVE TO STIMULI [None]
